FAERS Safety Report 4501921-1 (Version None)
Quarter: 2004Q4

REPORT INFORMATION
  Report Type: 
  Country: None (occurrence: None)
  Receive Date: 20041116
  Receipt Date: 20041105
  Transmission Date: 20050328
  Serious: Yes (Other)
  Sender: FDA-Public Use
  Company Number: US-BRISTOL-MYERS SQUIBB COMPANY-12763991

PATIENT
  Age: 43 Year
  Sex: Male

DRUGS (4)
  1. SERZONE [Suspect]
     Dates: start: 20000118, end: 20010326
  2. TRAZODONE HCL [Concomitant]
  3. VALIUM [Concomitant]
  4. BIAXIN [Concomitant]

REACTIONS (8)
  - CHOLELITHIASIS [None]
  - DIVERTICULUM [None]
  - HEPATIC CIRRHOSIS [None]
  - MAJOR DEPRESSION [None]
  - PORTAL HYPERTENSION [None]
  - RENAL CYST [None]
  - SUICIDAL IDEATION [None]
  - VARICES OESOPHAGEAL [None]
